FAERS Safety Report 25392934 (Version 1)
Quarter: 2025Q2

REPORT INFORMATION
  Report Type: Spontaneous
  Country: GB (occurrence: GB)
  Receive Date: 20250604
  Receipt Date: 20250604
  Transmission Date: 20250717
  Serious: Yes (Other)
  Sender: ABBVIE
  Company Number: None

PATIENT
  Age: 26 Year
  Sex: Female

DRUGS (1)
  1. LUPRON DEPOT [Suspect]
     Active Substance: LEUPROLIDE ACETATE
     Indication: Endometriosis
     Route: 058
     Dates: end: 20230401

REACTIONS (7)
  - Medication error [Unknown]
  - Neurological symptom [Recovering/Resolving]
  - Migraine [Recovered/Resolved]
  - Paraesthesia [Not Recovered/Not Resolved]
  - Breast pain [Recovered/Resolved]
  - Conversion disorder [Not Recovered/Not Resolved]
  - Skin atrophy [Recovered/Resolved]

NARRATIVE: CASE EVENT DATE: 20210701
